FAERS Safety Report 14922419 (Version 9)
Quarter: 2018Q4

REPORT INFORMATION
  Report Type: Spontaneous
  Country: US (occurrence: US)
  Receive Date: 20180522
  Receipt Date: 20181116
  Transmission Date: 20190204
  Serious: Yes (Other)
  Sender: FDA-Public Use
  Company Number: US-PFIZER INC-2018140108

PATIENT
  Age: 68 Year
  Sex: Female
  Weight: 92 kg

DRUGS (13)
  1. LETROZOLE. [Suspect]
     Active Substance: LETROZOLE
     Indication: PLEURAL NEOPLASM
     Dosage: 2.5 MG, 1X/DAY (ONE IN THE EVENING)
     Route: 048
     Dates: start: 20180317
  2. ASPIRIN. [Concomitant]
     Active Substance: ASPIRIN
     Indication: ANTICOAGULANT THERAPY
     Dosage: 81 MG, DAILY
     Route: 048
  3. IBRANCE [Suspect]
     Active Substance: PALBOCICLIB
     Indication: PLEURAL NEOPLASM
     Dosage: 125 MG, UNK
  4. IBRANCE [Suspect]
     Active Substance: PALBOCICLIB
     Dosage: 125 MG, CYCLIC, (21 DAYS ON 7 DAYS OFF)
     Route: 048
  5. AMLODIPINE [Concomitant]
     Active Substance: AMLODIPINE BESYLATE
     Indication: BLOOD PRESSURE ABNORMAL
     Dosage: 5 MG, 1X/DAY
     Route: 048
  6. SYNTHROID [Concomitant]
     Active Substance: LEVOTHYROXINE SODIUM
     Indication: THYROID DISORDER
  7. JANUMET [Concomitant]
     Active Substance: METFORMIN HYDROCHLORIDE\SITAGLIPTIN PHOSPHATE
     Dosage: UNK, 1X/DAY (50 MG SITAGLIPTIN/500 MG METFORMIN HYDROCHLORIDE)
     Route: 048
  8. OLMESARTAN [Concomitant]
     Active Substance: OLMESARTAN
     Indication: BLOOD PRESSURE ABNORMAL
     Dosage: 40 MG, 1X/DAY
     Route: 048
  9. ASPIRIN. [Concomitant]
     Active Substance: ASPIRIN
     Dosage: 81 MG, DAILY
     Route: 048
     Dates: start: 20180317
  10. IBRANCE [Suspect]
     Active Substance: PALBOCICLIB
     Dosage: 125 MG, CYCLIC, (21 DAYS ON 7 DAYS OFF)
     Route: 048
  11. SYNTHROID [Concomitant]
     Active Substance: LEVOTHYROXINE SODIUM
     Indication: HYPOTHYROIDISM
     Dosage: 50 UG, 1X/DAY
     Route: 048
  12. ROSUVASTATIN. [Concomitant]
     Active Substance: ROSUVASTATIN
     Indication: BLOOD CHOLESTEROL ABNORMAL
     Dosage: 20 MG, 1X/DAY
     Route: 048
  13. JANUMET [Concomitant]
     Active Substance: METFORMIN HYDROCHLORIDE\SITAGLIPTIN PHOSPHATE
     Indication: DIABETES MELLITUS
     Dosage: 5500 MG, 1X/DAY
     Route: 048

REACTIONS (11)
  - Memory impairment [Unknown]
  - Dysgeusia [Recovering/Resolving]
  - Pulmonary oedema [Unknown]
  - Contusion [Not Recovered/Not Resolved]
  - Alopecia [Unknown]
  - Product use in unapproved indication [Unknown]
  - Abdominal discomfort [Unknown]
  - Dyspnoea [Unknown]
  - Visual impairment [Unknown]
  - Pruritus [Unknown]
  - Abdominal pain upper [Unknown]
